FAERS Safety Report 14018691 (Version 1)
Quarter: 2017Q3

REPORT INFORMATION
  Report Type: Report from Study
  Country: None (occurrence: BR)
  Receive Date: 20170928
  Receipt Date: 20170928
  Transmission Date: 20171128
  Serious: Yes (Disabling)
  Sender: FDA-Public Use
  Company Number: BR-ABBVIE-17K-020-2111109-00

PATIENT
  Sex: Female
  Weight: 88 kg

DRUGS (3)
  1. HUMIRA [Suspect]
     Active Substance: ADALIMUMAB
     Route: 058
     Dates: start: 2017
  2. HUMIRA [Suspect]
     Active Substance: ADALIMUMAB
     Indication: SCLERITIS
     Route: 058
     Dates: start: 20150824, end: 201705
  3. METHOTREXATE. [Concomitant]
     Active Substance: METHOTREXATE
     Indication: SCLERITIS

REACTIONS (3)
  - Raynaud^s phenomenon [Not Recovered/Not Resolved]
  - Malaise [Recovered/Resolved]
  - Scleritis [Recovered/Resolved]
